FAERS Safety Report 6687256-X (Version None)
Quarter: 2010Q2

REPORT INFORMATION
  Report Type: 
  Country: None (occurrence: None)
  Receive Date: 20100419
  Receipt Date: 20100406
  Transmission Date: 20101027
  Serious: Yes (Hospitalization)
  Sender: FDA-Public Use
  Company Number: DE-AMGEN-US404304

PATIENT
  Age: 63 Year
  Sex: Female

DRUGS (2)
  1. ENBREL [Suspect]
     Indication: RHEUMATOID ARTHRITIS
     Route: 058
     Dates: start: 20080701, end: 20100101
  2. METHOTREXATE [Concomitant]
     Dosage: 10 MG (FREQUENCY UNKNOWN)
     Route: 058

REACTIONS (2)
  - FALL [None]
  - FEMORAL NECK FRACTURE [None]
